FAERS Safety Report 12702472 (Version 2)
Quarter: 2016Q4

REPORT INFORMATION
  Report Type: Spontaneous
  Country: US (occurrence: US)
  Receive Date: 20160831
  Receipt Date: 20161025
  Transmission Date: 20170207
  Serious: Yes (Hospitalization)
  Sender: FDA-Public Use
  Company Number: US-JNJFOC-20160804505

PATIENT
  Age: 34 Year
  Sex: Female
  Weight: 56.7 kg

DRUGS (3)
  1. ALLERGIA [Concomitant]
     Indication: MULTIPLE ALLERGIES
     Route: 065
  2. TOPAMAX [Suspect]
     Active Substance: TOPIRAMATE
     Indication: VESTIBULAR MIGRAINE
     Route: 048
     Dates: start: 2014
  3. TOPAMAX [Suspect]
     Active Substance: TOPIRAMATE
     Indication: VESTIBULAR MIGRAINE
     Route: 048
     Dates: start: 2013

REACTIONS (4)
  - Dysgeusia [Unknown]
  - Cognitive disorder [Unknown]
  - Pancreatitis acute [Recovering/Resolving]
  - Urticaria [Recovered/Resolved]

NARRATIVE: CASE EVENT DATE: 20130706
